FAERS Safety Report 4996335-4 (Version None)
Quarter: 2006Q2

REPORT INFORMATION
  Report Type: 
  Country: None (occurrence: None)
  Receive Date: 20060509
  Receipt Date: 20060418
  Transmission Date: 20061013
  Serious: Yes (Life-Threatening, Hospitalization)
  Sender: FDA-Public Use
  Company Number: CA-AMGEN-KDL176655

PATIENT
  Sex: Female

DRUGS (4)
  1. ENBREL [Suspect]
     Indication: RHEUMATOID ARTHRITIS
     Route: 058
     Dates: start: 20050802, end: 20051217
  2. PREDNISONE TAB [Concomitant]
     Dates: start: 20010101
  3. SULFASALAZINE [Concomitant]
     Dates: start: 20040101
  4. METHOTREXATE [Concomitant]

REACTIONS (1)
  - ENCEPHALITIS HERPES [None]
